FAERS Safety Report 5535051-7 (Version None)
Quarter: 2007Q4

REPORT INFORMATION
  Report Type: 
  Country: None (occurrence: None)
  Receive Date: 20071203
  Receipt Date: 20071120
  Transmission Date: 20080405
  Serious: Yes (Hospitalization)
  Sender: FDA-Public Use
  Company Number: 2007BI022980

PATIENT
  Age: 62 Year
  Sex: Female
  Weight: 77.27 kg

DRUGS (9)
  1. NATALIZUMAB [Suspect]
     Indication: MULTIPLE SCLEROSIS
     Dosage: 300 MG;QM;IV
     Route: 042
     Dates: start: 20070207, end: 20070821
  2. NEUTONTIN [Concomitant]
  3. DETROL [Concomitant]
  4. MIRAPEX [Concomitant]
  5. VYTORIN [Concomitant]
  6. SYNTHROID [Concomitant]
  7. HYDROCHLOROTHIAZIDE [Concomitant]
  8. FOSAMAX [Concomitant]
  9. DARVOCET [Concomitant]

REACTIONS (26)
  - ACUTE MYOCARDIAL INFARCTION [None]
  - BIOPSY BONE MARROW ABNORMAL [None]
  - BLEPHARITIS [None]
  - BLOOD ALBUMIN DECREASED [None]
  - CARDIAC ANEURYSM [None]
  - COGNITIVE DISORDER [None]
  - CONDITION AGGRAVATED [None]
  - CONJUNCTIVAL HYPERAEMIA [None]
  - CULTURE URINE POSITIVE [None]
  - DISORIENTATION [None]
  - DIZZINESS [None]
  - DYSPHAGIA [None]
  - HEPATITIS [None]
  - HYPERTENSION [None]
  - HYPOTHERMIA [None]
  - MEGAKARYOCYTES ABNORMAL [None]
  - MONOCYTE COUNT INCREASED [None]
  - MUSCLE SPASMS [None]
  - MUSCULAR WEAKNESS [None]
  - NERVOUS SYSTEM DISORDER [None]
  - NEUTROPHIL COUNT INCREASED [None]
  - PANCYTOPENIA [None]
  - PARAESTHESIA [None]
  - SOMNOLENCE [None]
  - VIRAL INFECTION [None]
  - VIRAL MYOCARDITIS [None]
